FAERS Safety Report 9850005 (Version 2)
Quarter: 2014Q1

REPORT INFORMATION
  Report Type: Spontaneous
  Country: US (occurrence: US)
  Receive Date: 20140128
  Receipt Date: 20140312
  Transmission Date: 20141002
  Serious: No
  Sender: FDA-Public Use
  Company Number: US-009507513-1401USA007200

PATIENT
  Age: 84 Year
  Sex: Male

DRUGS (1)
  1. MIRALAX [Suspect]
     Indication: PRODUCT USED FOR UNKNOWN INDICATION
     Dosage: UNK, UNKNOWN
     Route: 048

REACTIONS (6)
  - Lung disorder [Recovering/Resolving]
  - Arthritis [Recovering/Resolving]
  - Sinusitis [Recovering/Resolving]
  - Musculoskeletal discomfort [Recovering/Resolving]
  - Unevaluable event [Recovering/Resolving]
  - Incorrect drug administration duration [Unknown]
